FAERS Safety Report 25757249 (Version 1)
Quarter: 2025Q3

REPORT INFORMATION
  Report Type: Spontaneous
  Country: GB (occurrence: GB)
  Receive Date: 20250903
  Receipt Date: 20250903
  Transmission Date: 20251021
  Serious: Yes (Other)
  Sender: AMGEN
  Company Number: GB-AMGEN-GBRSP2025171421

PATIENT
  Sex: Female

DRUGS (1)
  1. SOTORASIB [Suspect]
     Active Substance: SOTORASIB
     Indication: Lung adenocarcinoma
     Route: 065

REACTIONS (1)
  - Pericardial effusion [Unknown]
